FAERS Safety Report 9395014 (Version 3)
Quarter: 2013Q3

REPORT INFORMATION
  Report Type: Spontaneous
  Country: IT (occurrence: IT)
  Receive Date: 20130711
  Receipt Date: 20130819
  Transmission Date: 20140515
  Serious: Yes (Hospitalization)
  Sender: FDA-Public Use
  Company Number: IT-VERTEX PHARMACEUTICALS INC-2013-007855

PATIENT
  Age: 41 Year
  Sex: Male

DRUGS (3)
  1. INCIVO [Suspect]
     Indication: CHRONIC HEPATITIS C
     Dosage: 2250 MG DAILY
     Route: 048
     Dates: start: 20130527, end: 20130702
  2. PEGASYS [Suspect]
     Indication: CHRONIC HEPATITIS C
     Dosage: 180 ?G, QW
     Route: 058
     Dates: start: 20130527, end: 20130702
  3. COPEGUS [Suspect]
     Indication: CHRONIC HEPATITIS C
     Dosage: 200 MG, QID
     Route: 048
     Dates: start: 20130527, end: 20130702

REACTIONS (4)
  - Gingival bleeding [Unknown]
  - Asthenia [Unknown]
  - Anaemia [Unknown]
  - Thrombocytopenia [Unknown]
